FAERS Safety Report 25763100 (Version 2)
Quarter: 2025Q3

REPORT INFORMATION
  Report Type: Spontaneous
  Country: EU (occurrence: EU)
  Receive Date: 20250904
  Receipt Date: 20250923
  Transmission Date: 20251021
  Serious: Yes (Hospitalization, Other)
  Sender: SANDOZ
  Company Number: EU-SANDOZ-SDZ2025ES063807

PATIENT
  Age: 45 Year
  Sex: Female

DRUGS (4)
  1. NATALIZUMAB [Suspect]
     Active Substance: NATALIZUMAB
     Indication: Product used for unknown indication
     Dosage: UNK UNK, QMO
     Route: 040
     Dates: start: 20250507
  2. NATALIZUMAB [Suspect]
     Active Substance: NATALIZUMAB
     Dosage: UNK UNK, QMO
     Route: 040
     Dates: start: 20250604
  3. NATALIZUMAB [Suspect]
     Active Substance: NATALIZUMAB
     Dosage: UNK UNK, QMO
     Route: 040
     Dates: start: 20250706
  4. NATALIZUMAB [Suspect]
     Active Substance: NATALIZUMAB
     Dosage: UNK UNK, QMO
     Route: 040
     Dates: start: 20250827

REACTIONS (7)
  - Spinal cord injury [Unknown]
  - Condition aggravated [Unknown]
  - Muscular weakness [Unknown]
  - Unevaluable event [Unknown]
  - Myalgia [Unknown]
  - Muscle spasms [Unknown]
  - Urinary tract infection [Unknown]

NARRATIVE: CASE EVENT DATE: 20250101
